FAERS Safety Report 16701401 (Version 2)
Quarter: 2020Q3

REPORT INFORMATION
  Report Type: Spontaneous
  Country: AU (occurrence: AU)
  Receive Date: 20190814
  Receipt Date: 20200930
  Transmission Date: 20201102
  Serious: Yes (Death, Life-Threatening, Hospitalization, Other)
  Sender: FDA-Public Use
  Company Number: AU-009507513-1907AUS014035

PATIENT
  Age: 69 Year
  Sex: Female
  Weight: 74.9 kg

DRUGS (3)
  1. CLOPIDOGREL [Suspect]
     Active Substance: CLOPIDOGREL BISULFATE
     Indication: ACUTE MYOCARDIAL INFARCTION
     Dosage: 75 MILLIGRAM, QD (DAILY DOSE)
     Route: 048
     Dates: start: 20190503, end: 20190513
  2. KEYTRUDA [Suspect]
     Active Substance: PEMBROLIZUMAB
     Indication: NON-SMALL CELL LUNG CANCER METASTATIC
     Dosage: 200 MILLIGRAM, EVERY 3 WEEKS
     Route: 042
     Dates: start: 20190322, end: 20190412
  3. ASPIRIN. [Suspect]
     Active Substance: ASPIRIN
     Indication: ACUTE MYOCARDIAL INFARCTION
     Dosage: 100 MILLIGRAM, QD (DAILY DOSE)
     Route: 048
     Dates: start: 20190503, end: 20190513

REACTIONS (12)
  - Cardiomyopathy [Not Recovered/Not Resolved]
  - Myopathy [Not Recovered/Not Resolved]
  - Hepatitis [Recovering/Resolving]
  - Muscle haemorrhage [Fatal]
  - Vitiligo [Unknown]
  - Immune-mediated adverse reaction [Not Recovered/Not Resolved]
  - Myositis [Not Recovered/Not Resolved]
  - Coronary artery disease [Unknown]
  - Ascites [Unknown]
  - Rash [Unknown]
  - Malignant neoplasm progression [Unknown]
  - Ventricular hypokinesia [Unknown]

NARRATIVE: CASE EVENT DATE: 2019
